FAERS Safety Report 8104101-6 (Version None)
Quarter: 2012Q1

REPORT INFORMATION
  Report Type: 
  Country: None (occurrence: None)
  Receive Date: 20120201
  Receipt Date: 20120120
  Transmission Date: 20120608
  Serious: Yes (Other)
  Sender: FDA-Public Use
  Company Number: JP-UCBSA-050282

PATIENT
  Age: 45 Year
  Sex: Female

DRUGS (5)
  1. KEPPRA [Suspect]
     Indication: PARTIAL SEIZURES WITH SECONDARY GENERALISATION
     Dosage: DOSE REDUCED TO 500 MG DAILY
     Route: 048
     Dates: start: 20110915, end: 20111027
  2. PHENYTOIN [Suspect]
     Indication: PARTIAL SEIZURES WITH SECONDARY GENERALISATION
     Dosage: TOTAL DAILY DOSE: 200 MG
     Route: 048
  3. VALPROATE SODIUM [Concomitant]
     Indication: PARTIAL SEIZURES WITH SECONDARY GENERALISATION
     Dosage: TOTAL DAILY DOSE: 800 MG
     Route: 048
  4. PHENOBARBITAL TAB [Suspect]
     Indication: PARTIAL SEIZURES WITH SECONDARY GENERALISATION
     Dosage: TOTAL DAILY DOSE: 90 MG
     Route: 048
  5. CLOBAZAM [Concomitant]
     Indication: PARTIAL SEIZURES WITH SECONDARY GENERALISATION
     Dosage: TOTAL DAILY DOSE: 5 MG
     Route: 048

REACTIONS (2)
  - DIZZINESS [None]
  - PSYCHIATRIC SYMPTOM [None]
